FAERS Safety Report 13918694 (Version 1)
Quarter: 2017Q3

REPORT INFORMATION
  Report Type: Spontaneous
  Country: GB (occurrence: US)
  Receive Date: 20170829
  Receipt Date: 20170829
  Transmission Date: 20171127
  Serious: Yes (Other)
  Sender: FDA-Public Use
  Company Number: GB-MYLANLABS-2017M1053036

PATIENT

DRUGS (2)
  1. FENTANYL. [Suspect]
     Active Substance: FENTANYL
     Dosage: UNK
     Route: 062
  2. FENTANYL. [Suspect]
     Active Substance: FENTANYL
     Indication: PAIN
     Dosage: UNK
     Route: 062

REACTIONS (8)
  - Drug abuse [Unknown]
  - Formication [Unknown]
  - Withdrawal syndrome [Unknown]
  - Feeling hot [Unknown]
  - Chills [Unknown]
  - Drug ineffective [Unknown]
  - Feeling abnormal [Unknown]
  - Dependence [Unknown]
